FAERS Safety Report 24993187 (Version 1)
Quarter: 2025Q1

REPORT INFORMATION
  Report Type: Spontaneous
  Country: CN (occurrence: CN)
  Receive Date: 20250221
  Receipt Date: 20250221
  Transmission Date: 20250409
  Serious: Yes (Other)
  Sender: JIANGSU HENGRUI
  Company Number: CN-JIANGSU HENGRUI PHARMACEUTICALS CO., LTD.-H2025001200889

PATIENT
  Age: 60 Year

DRUGS (5)
  1. PACLITAXEL [Suspect]
     Active Substance: PACLITAXEL
     Indication: Lung adenocarcinoma
  2. PACLITAXEL [Suspect]
     Active Substance: PACLITAXEL
  3. SINTILIMAB [Suspect]
     Active Substance: SINTILIMAB
     Indication: Lung adenocarcinoma
  4. SINTILIMAB [Suspect]
     Active Substance: SINTILIMAB
  5. SINTILIMAB [Suspect]
     Active Substance: SINTILIMAB

REACTIONS (4)
  - Myelosuppression [Recovering/Resolving]
  - Hypothyroidism [Recovering/Resolving]
  - Hyponatraemia [Recovering/Resolving]
  - Product use in unapproved indication [Unknown]
